FAERS Safety Report 6687415-6 (Version None)
Quarter: 2010Q2

REPORT INFORMATION
  Report Type: 
  Country: None (occurrence: None)
  Receive Date: 20100416
  Receipt Date: 20100416
  Transmission Date: 20101027
  Serious: Yes (Other)
  Sender: FDA-Public Use
  Company Number: None

PATIENT
  Age: 25 Year
  Sex: Female
  Weight: 55.3388 kg

DRUGS (7)
  1. REMICADE [Suspect]
     Indication: INFLAMMATORY BOWEL DISEASE
     Dosage: 5MG/KG EVERY 8 WEEKS IV
     Route: 042
     Dates: start: 20060901, end: 20070501
  2. REMICADE [Concomitant]
  3. METHOTREXATE [Concomitant]
  4. LIALDA [Concomitant]
  5. CANASA [Concomitant]
  6. DEPOMEDROMOL [Concomitant]
  7. VITAMIN B-12 [Concomitant]

REACTIONS (2)
  - NAUSEA [None]
  - SYSTEMIC LUPUS ERYTHEMATOSUS [None]
